FAERS Safety Report 18067321 (Version 1)
Quarter: 2020Q3

REPORT INFORMATION
  Report Type: Spontaneous
  Country: US (occurrence: US)
  Receive Date: 20200724
  Receipt Date: 20200724
  Transmission Date: 20201103
  Serious: Yes (Hospitalization, Other)
  Sender: FDA-Public Use
  Company Number: US-GALDERMA-US2020034191

PATIENT
  Age: 33 Year
  Sex: Female

DRUGS (2)
  1. DOXYCYCLINE. [Suspect]
     Active Substance: DOXYCYCLINE
     Indication: PNEUMONIA
     Route: 065
  2. LEVAQUIN [Concomitant]
     Active Substance: LEVOFLOXACIN
     Indication: PNEUMONIA
     Route: 065

REACTIONS (14)
  - Thrombocytopenia [Unknown]
  - Skin burning sensation [Recovering/Resolving]
  - Odynophagia [Recovered/Resolved]
  - Rash macular [Recovering/Resolving]
  - Scab [Recovering/Resolving]
  - Intentional product use issue [Recovered/Resolved]
  - Pain of skin [Recovering/Resolving]
  - Rash pruritic [Recovering/Resolving]
  - Dysphagia [Recovered/Resolved]
  - Rhabdomyolysis [Recovered/Resolved]
  - Drug ineffective for unapproved indication [Recovered/Resolved]
  - Transaminases increased [Unknown]
  - Dermatomyositis [Recovering/Resolving]
  - Muscular weakness [Recovered/Resolved]
